FAERS Safety Report 14685791 (Version 1)
Quarter: 2018Q1

REPORT INFORMATION
  Report Type: Spontaneous
  Country: RO (occurrence: RO)
  Receive Date: 20180327
  Receipt Date: 20180327
  Transmission Date: 20180509
  Serious: Yes (Hospitalization, Other)
  Sender: FDA-Public Use
  Company Number: RO-PFIZER INC-2018121089

PATIENT
  Age: 72 Year
  Sex: Male
  Weight: 62 kg

DRUGS (6)
  1. SUTENT [Suspect]
     Active Substance: SUNITINIB MALATE
     Indication: RENAL CANCER METASTATIC
     Dosage: 50 MG, UNK
     Dates: end: 20180316
  2. ATACAND [Concomitant]
     Active Substance: CANDESARTAN CILEXETIL
     Dosage: UNK UNK, 1X/DAY IN THE MORNING
  3. VENTER [Concomitant]
     Dosage: UNK UNK, 3X/DAY, MORNING, NOON AND EVENING
  4. ASPIRIN CARDIO [Concomitant]
     Active Substance: ASPIRIN
     Dosage: UNK UNK, 1X/DAY, EVENING
  5. ESOMEPRAZOLE [Concomitant]
     Active Substance: ESOMEPRAZOLE
     Dosage: UNK UNK, 1X/DAY, MORNING
  6. BETALOC [Concomitant]
     Active Substance: METOPROLOL TARTRATE
     Dosage: UNK UNK, 1X/DAY IN THE MORNING

REACTIONS (4)
  - Dysphagia [Recovered/Resolved]
  - Oesophagitis ulcerative [Recovered/Resolved]
  - Chest pain [Recovered/Resolved]
  - Dyspepsia [Recovered/Resolved]

NARRATIVE: CASE EVENT DATE: 20180315
